FAERS Safety Report 5153162-5 (Version None)
Quarter: 2006Q4

REPORT INFORMATION
  Report Type: 
  Country: None (occurrence: None)
  Receive Date: 20061113
  Receipt Date: 20061102
  Transmission Date: 20070319
  Serious: Yes (Hospitalization)
  Sender: FDA-Public Use
  Company Number: 2006-05682

PATIENT
  Age: 54 Year
  Sex: Female

DRUGS (7)
  1. QUININE SULFATE [Suspect]
     Indication: MUSCLE SPASMS
     Dosage: SEE IMAGE
     Route: 048
     Dates: start: 20050301, end: 20050301
  2. QUININE SULFATE [Suspect]
     Indication: MUSCLE SPASMS
     Dosage: SEE IMAGE
     Route: 048
     Dates: start: 20060101, end: 20060101
  3. ATORVASTATIN (ATORVASTATIN) 20MG [Suspect]
     Dosage: 1 TABLET, DAILY
  4. AMLODIPINE [Concomitant]
  5. ATENOLOL [Concomitant]
  6. ASPIRIN [Concomitant]
  7. GLUCOSAMINE [Concomitant]

REACTIONS (5)
  - DISSEMINATED INTRAVASCULAR COAGULATION [None]
  - DRUG INTERACTION [None]
  - HAEMOLYTIC URAEMIC SYNDROME [None]
  - RENAL FAILURE [None]
  - RHABDOMYOLYSIS [None]
